FAERS Safety Report 5377275-8 (Version None)
Quarter: 2007Q2

REPORT INFORMATION
  Report Type: 
  Country: None (occurrence: None)
  Receive Date: 20070530
  Receipt Date: 20070227
  Transmission Date: 20071010
  Serious: No
  Sender: FDA-Public Use
  Company Number: 2007PV030845

PATIENT
  Sex: Male

DRUGS (4)
  1. BYETTA [Suspect]
     Indication: DRUG USE FOR UNKNOWN INDICATION
     Dosage: 5 MCG;SC   10 MCG;SC
     Route: 058
  2. AMARYL [Concomitant]
  3. METFORMIN HCL [Concomitant]
  4. JUNUVEA [Concomitant]

REACTIONS (3)
  - LOSS OF LIBIDO [None]
  - NAUSEA [None]
  - WEIGHT DECREASED [None]
